FAERS Safety Report 6784582-0 (Version None)
Quarter: 2010Q2

REPORT INFORMATION
  Report Type: 
  Country: None (occurrence: None)
  Receive Date: 20100622
  Receipt Date: 20100615
  Transmission Date: 20101027
  Serious: Yes (Other)
  Sender: FDA-Public Use
  Company Number: A0850520A

PATIENT
  Age: 69 Year
  Sex: Male
  Weight: 46.6 kg

DRUGS (1)
  1. VOTRIENT [Suspect]
     Indication: RENAL CANCER METASTATIC
     Dosage: 400MG PER DAY
     Route: 065
     Dates: start: 20100201

REACTIONS (7)
  - DEAFNESS [None]
  - DIZZINESS [None]
  - HEADACHE [None]
  - HEARING IMPAIRED [None]
  - HYPERACUSIS [None]
  - SENSORY DISTURBANCE [None]
  - TINNITUS [None]
